FAERS Safety Report 10065651 (Version 1)
Quarter: 2014Q2

REPORT INFORMATION
  Report Type: Spontaneous
  Country: US (occurrence: US)
  Receive Date: 20140408
  Receipt Date: 20140408
  Transmission Date: 20141212
  Serious: No
  Sender: FDA-Public Use
  Company Number: US-PFIZER INC-2014095292

PATIENT
  Age: 54 Year
  Sex: Female
  Weight: 86 kg

DRUGS (3)
  1. LYRICA [Suspect]
     Indication: FIBROMYALGIA
     Dosage: 50 MG, DAILY
     Dates: start: 201403
  2. LYRICA [Suspect]
     Dosage: 100 MG, DAILY
  3. LYRICA [Suspect]
     Dosage: UNK

REACTIONS (3)
  - Pre-existing condition improved [Unknown]
  - Somnolence [Unknown]
  - Therapeutic response changed [Unknown]
